FAERS Safety Report 6054709-7 (Version None)
Quarter: 2009Q1

REPORT INFORMATION
  Report Type: 
  Country: None (occurrence: None)
  Receive Date: 20090128
  Receipt Date: 20090116
  Transmission Date: 20090719
  Serious: Yes (Death)
  Sender: FDA-Public Use
  Company Number: US-WYE-H07734909

PATIENT
  Sex: Female

DRUGS (1)
  1. PROTONIX [Suspect]
     Route: 048

REACTIONS (1)
  - DEATH [None]
